FAERS Safety Report 7428907-1 (Version None)
Quarter: 2011Q2

REPORT INFORMATION
  Report Type: 
  Country: None (occurrence: None)
  Receive Date: 20110412
  Receipt Date: 20110328
  Transmission Date: 20111010
  Serious: Yes (Other)
  Sender: FDA-Public Use
  Company Number: DSJ-2011-06075

PATIENT
  Age: 86 Year
  Sex: Male
  Weight: 69 kg

DRUGS (6)
  1. DIOVAN [Concomitant]
  2. CARVEDILOL [Concomitant]
  3. BAYASPIRIN (ACETYLSALICYLIC ACD) (ACETYLSALICYLIC ACID) [Concomitant]
  4. LIVALO (ITAVASTATIN CALCIUM) (ITAVASTATIN CALCIUM) [Concomitant]
  5. AMLODIN OD (AMLODIPINE BESILATE) (AMLODIPINE BESILATE) [Concomitant]
  6. OLMESARTAN MEDOXOMIL [Suspect]
     Indication: ESSENTIAL HYPERTENSION
     Dosage: 20 MG,PER ORAL
     Route: 048
     Dates: start: 20100623

REACTIONS (1)
  - BLOOD PRESSURE DECREASED [None]
